FAERS Safety Report 7552281-3 (Version None)
Quarter: 2011Q2

REPORT INFORMATION
  Report Type: 
  Country: None (occurrence: None)
  Receive Date: 20110616
  Receipt Date: 20050223
  Transmission Date: 20111010
  Serious: Yes (Hospitalization)
  Sender: FDA-Public Use
  Company Number: PHHO2005JP03387

PATIENT
  Sex: Male
  Weight: 57 kg

DRUGS (1)
  1. DIOVAN [Suspect]
     Indication: HYPERTENSION
     Dosage: 80 MG, QD
     Route: 048
     Dates: start: 20030215

REACTIONS (3)
  - SICK SINUS SYNDROME [None]
  - DIZZINESS [None]
  - AXILLARY PAIN [None]
